FAERS Safety Report 18223719 (Version 1)
Quarter: 2020Q3

REPORT INFORMATION
  Report Type: Spontaneous
  Country: US (occurrence: US)
  Receive Date: 20200902
  Receipt Date: 20200902
  Transmission Date: 20201103
  Serious: No
  Sender: FDA-Public Use
  Company Number: US-009507513-2009USA000018

PATIENT
  Age: 21 Year
  Sex: Female
  Weight: 101.6 kg

DRUGS (1)
  1. NEXPLANON [Suspect]
     Active Substance: ETONOGESTREL
     Dosage: 1 IMPLANT (68 MG), EVERY 3 YEARS
     Dates: start: 201707

REACTIONS (7)
  - Complication of device removal [Not Recovered/Not Resolved]
  - Implant site swelling [Unknown]
  - Device issue [Not Recovered/Not Resolved]
  - Agitation [Unknown]
  - Incorrect product administration duration [Unknown]
  - Complication associated with device [Not Recovered/Not Resolved]
  - Paraesthesia [Unknown]

NARRATIVE: CASE EVENT DATE: 20200608
